FAERS Safety Report 7129471-7 (Version None)
Quarter: 2010Q4

REPORT INFORMATION
  Report Type: 
  Country: None (occurrence: None)
  Receive Date: 20101130
  Receipt Date: 20101113
  Transmission Date: 20110411
  Serious: No
  Sender: FDA-Public Use
  Company Number: US-B.I. PHARMACEUTICALS,INC./RIDGEFIELD-2010-BP-12811BP

PATIENT
  Sex: Female

DRUGS (1)
  1. ZANTAC 150 [Suspect]
     Dates: start: 20080101

REACTIONS (4)
  - APHAGIA [None]
  - DRUG INEFFECTIVE [None]
  - DYSPHAGIA [None]
  - WEIGHT DECREASED [None]
